FAERS Safety Report 12467082 (Version 1)
Quarter: 2016Q2

REPORT INFORMATION
  Report Type: Spontaneous
  Country: US (occurrence: None)
  Receive Date: 20160614
  Receipt Date: 20160614
  Transmission Date: 20160815
  Serious: No
  Sender: FDA-Public Use
  Company Number: None

PATIENT

DRUGS (5)
  1. HYDROCODONE BITARTRATE AND ACETAMINOPEHN HYDROCODONE AND ACETAMINOPHEN [Suspect]
     Active Substance: ACETAMINOPHEN\HYDROCODONE BITARTRATE
     Route: 048
  2. METOPROLOL SUCCINATE EXTENDED RELEASE METOPROLOL SUCCINATE [Suspect]
     Active Substance: METOPROLOL SUCCINATE
     Route: 048
  3. GUANFACINE HCL GUANFACINE HCL 3MG WHOLESALE CORPORATION COSTCO [Suspect]
     Active Substance: GUANFACINE HYDROCHLORIDE
     Route: 048
  4. NORCO [Suspect]
     Active Substance: ACETAMINOPHEN\HYDROCODONE BITARTRATE
     Route: 048
  5. METOPROLOL TARTRATE METOPROLOL [Suspect]
     Active Substance: METOPROLOL TARTRATE
     Route: 048

REACTIONS (2)
  - Incorrect dose administered [None]
  - Drug dispensing error [None]
